FAERS Safety Report 8533395-8 (Version None)
Quarter: 2012Q3

REPORT INFORMATION
  Report Type: 
  Country: None (occurrence: None)
  Receive Date: 20120724
  Receipt Date: 20120719
  Transmission Date: 20120928
  Serious: Yes (Life-Threatening, Hospitalization)
  Sender: FDA-Public Use
  Company Number: PHEH2012US014086

PATIENT
  Sex: Female
  Weight: 134 kg

DRUGS (17)
  1. CALCIUM [Concomitant]
     Dosage: UNK UKN, UNK
  2. PREMARIN [Concomitant]
  3. SYNTHROID [Concomitant]
     Dosage: 17.5 MG
  4. ADVAIR DISKUS 100/50 [Concomitant]
     Dosage: 1 DF, BID
  5. AMBIEN [Concomitant]
     Dosage: 10 MG, H.S.PRN
  6. HYDRODIURIL [Concomitant]
     Dosage: 12.5 DAILY
  7. DIOVAN HCT [Concomitant]
     Dosage: 320-25 MG
  8. CORTEF [Concomitant]
     Dosage: 10 MG, QD
  9. SYNTHROID [Concomitant]
     Dosage: 125 UG, DAILY
     Route: 048
  10. PRAVIGARD PAC (COPACKAGED) [Concomitant]
     Dosage: 80 MG, QD
  11. DISUL-S [Concomitant]
  12. XANAX [Concomitant]
     Dosage: 5 PRN
  13. ASPIRIN [Concomitant]
     Dosage: 81 MG, DAILY
  14. PROZAC [Concomitant]
     Dosage: 40 MG, QD
     Route: 048
  15. RECLAST [Suspect]
     Indication: OSTEOPOROSIS POSTMENOPAUSAL
     Dosage: 5 MG YEARLY
     Route: 042
     Dates: start: 20120711
  16. VITAMIN D [Concomitant]
     Dosage: 1 DF, BID
  17. DIOVAN HCT [Concomitant]
     Dosage: 1 DF DAILY

REACTIONS (7)
  - NAUSEA [None]
  - VOMITING [None]
  - PYREXIA [None]
  - HYPOTENSION [None]
  - DIARRHOEA [None]
  - SEPSIS [None]
  - BACTERAEMIA [None]
